FAERS Safety Report 6998147-9 (Version None)
Quarter: 2010Q3

REPORT INFORMATION
  Report Type: 
  Country: None (occurrence: None)
  Receive Date: 20100920
  Receipt Date: 20100301
  Transmission Date: 20110219
  Serious: Yes (Other)
  Sender: FDA-Public Use
  Company Number: US-ASTRAZENECA-2009UW20629

PATIENT
  Sex: Male

DRUGS (7)
  1. SEROQUEL [Suspect]
     Indication: ANXIETY
     Dosage: 200MG TO 400MG.
     Route: 048
     Dates: start: 20070802
  2. WELLBUTRIN [Concomitant]
  3. EFFEXOR [Concomitant]
     Dates: end: 20070802
  4. ATENOLOL [Concomitant]
  5. HYDROCHLOROTHIAZIDE [Concomitant]
  6. COGENTIN [Concomitant]
     Dates: end: 20070802
  7. LITHIUM CARBONATE [Concomitant]
     Dates: start: 20070802

REACTIONS (3)
  - DIABETES MELLITUS [None]
  - KETOACIDOSIS [None]
  - PANCREATITIS [None]
